FAERS Safety Report 10238453 (Version 1)
Quarter: 2014Q2

REPORT INFORMATION
  Report Type: Spontaneous
  Country: US (occurrence: US)
  Receive Date: 20140616
  Receipt Date: 20140616
  Transmission Date: 20141212
  Serious: Yes (Hospitalization)
  Sender: FDA-Public Use
  Company Number: US-SA-2014SA079191

PATIENT
  Age: 35 Year
  Sex: Female
  Weight: 95.25 kg

DRUGS (2)
  1. CEREZYME [Suspect]
     Indication: GAUCHER^S DISEASE
     Dosage: DOSE:37.7 UNIT(S)/KILOGRAM BODYWEIGHT
     Route: 042
     Dates: start: 20040612
  2. EPIPEN [Concomitant]

REACTIONS (1)
  - Bipolar disorder [Not Recovered/Not Resolved]
